FAERS Safety Report 24953853 (Version 1)
Quarter: 2025Q1

REPORT INFORMATION
  Report Type: Spontaneous
  Country: US (occurrence: US)
  Receive Date: 20250211
  Receipt Date: 20250211
  Transmission Date: 20250408
  Serious: Yes (Hospitalization)
  Sender: STRIDES
  Company Number: US-STRIDES ARCOLAB LIMITED-2025SP001936

PATIENT
  Age: 55 Year
  Sex: Female

DRUGS (1)
  1. SEVELAMER CARBONATE [Suspect]
     Active Substance: SEVELAMER CARBONATE
     Indication: Blood phosphorus increased
     Route: 065

REACTIONS (2)
  - Large intestinal ulcer [Recovered/Resolved]
  - Large intestinal haemorrhage [Recovered/Resolved]
